FAERS Safety Report 5239192-3 (Version None)
Quarter: 2007Q1

REPORT INFORMATION
  Report Type: 
  Country: None (occurrence: None)
  Receive Date: 20070212
  Receipt Date: 20070129
  Transmission Date: 20070707
  Serious: Yes (Death, Life-Threatening, Hospitalization)
  Sender: FDA-Public Use
  Company Number: A-JP2006-12841

PATIENT
  Age: 33 Year
  Sex: Female
  Weight: 49 kg

DRUGS (21)
  1. TRACLEER [Suspect]
     Indication: PULMONARY HYPERTENSION
     Dosage: SEE IMAGE
     Route: 048
     Dates: start: 20060111, end: 20060118
  2. TRACLEER [Suspect]
     Indication: PULMONARY HYPERTENSION
     Dosage: SEE IMAGE
     Route: 048
     Dates: start: 20060119, end: 20060123
  3. TRACLEER [Suspect]
     Indication: PULMONARY HYPERTENSION
     Dosage: SEE IMAGE
     Route: 048
     Dates: start: 20060124, end: 20060130
  4. TRACLEER [Suspect]
     Indication: PULMONARY HYPERTENSION
     Dosage: SEE IMAGE
     Route: 048
     Dates: start: 20060131, end: 20060202
  5. TRACLEER [Suspect]
     Indication: PULMONARY HYPERTENSION
     Dosage: SEE IMAGE
     Route: 048
     Dates: start: 20060207, end: 20060207
  6. TRACLEER [Suspect]
     Indication: PULMONARY HYPERTENSION
     Dosage: SEE IMAGE
     Route: 048
     Dates: start: 20060208, end: 20060214
  7. TRACLEER [Suspect]
     Indication: PULMONARY HYPERTENSION
     Dosage: SEE IMAGE
     Route: 048
     Dates: start: 20060407, end: 20060407
  8. TRACLEER [Suspect]
     Indication: PULMONARY HYPERTENSION
     Dosage: SEE IMAGE
     Route: 048
     Dates: start: 20060215
  9. TRACLEER [Suspect]
     Indication: PULMONARY HYPERTENSION
     Dosage: SEE IMAGE
     Route: 048
     Dates: start: 20060408
  10. EPOPROSTENOL SODIUM (EPOPROSTENOL S0DIUM) [Suspect]
  11. FUROSEMIDE [Concomitant]
  12. ZOLPIDEM TARTRATE [Concomitant]
  13. ANTIBIOTICS-RESISTANT LACTIC ACID BACTERIAE [Concomitant]
  14. CEFPODOXIME PROXETIL [Concomitant]
  15. IOXOPROFEN SODIUM (LOXOPROFEN SODIUM) [Concomitant]
  16. SENNA (SENNA) [Concomitant]
  17. SPIRONOLACTONE [Concomitant]
  18. WARFARIN SODIUM [Concomitant]
  19. OXYGEN (OXYGEN0 [Concomitant]
  20. OMEPRAZOLE [Concomitant]
  21. MAGNESIUM OXIDE (MAGNESIUM OXIDE) [Concomitant]

REACTIONS (20)
  - ALANINE AMINOTRANSFERASE INCREASED [None]
  - ASPARTATE AMINOTRANSFERASE INCREASED [None]
  - DISEASE PROGRESSION [None]
  - DRUG INTERACTION [None]
  - DYSPNOEA EXERTIONAL [None]
  - ELECTROMECHANICAL DISSOCIATION [None]
  - FLUSHING [None]
  - GAMMA-GLUTAMYLTRANSFERASE INCREASED [None]
  - HAEMOPTYSIS [None]
  - HEADACHE [None]
  - HYPOTENSION [None]
  - HYPOXIA [None]
  - INTERNATIONAL NORMALISED RATIO INCREASED [None]
  - MALAISE [None]
  - NASOPHARYNGITIS [None]
  - NO THERAPEUTIC RESPONSE [None]
  - PLATELET COUNT DECREASED [None]
  - PROTHROMBIN TIME SHORTENED [None]
  - PULMONARY HYPERTENSION [None]
  - RIGHT VENTRICULAR FAILURE [None]
